FAERS Safety Report 5125657-1 (Version None)
Quarter: 2006Q4

REPORT INFORMATION
  Report Type: 
  Country: None (occurrence: None)
  Receive Date: 20061012
  Receipt Date: 20061002
  Transmission Date: 20070319
  Serious: Yes (Hospitalization, Other)
  Sender: FDA-Public Use
  Company Number: PHEH2006US12393

PATIENT
  Age: 42 Year
  Sex: Male

DRUGS (1)
  1. CLOZARIL [Suspect]
     Dosage: 400 MG, QD
     Route: 048
     Dates: end: 20060901

REACTIONS (2)
  - BLOOD GLUCOSE ABNORMAL [None]
  - PNEUMONIA [None]
